FAERS Safety Report 6299236-7 (Version None)
Quarter: 2009Q3

REPORT INFORMATION
  Report Type: 
  Country: None (occurrence: None)
  Receive Date: 20090806
  Receipt Date: 20090728
  Transmission Date: 20100115
  Serious: Yes (Other)
  Sender: FDA-Public Use
  Company Number: GB-AMGEN-UK357959

PATIENT
  Sex: Female

DRUGS (4)
  1. NEUPOGEN [Suspect]
     Route: 051
     Dates: start: 20070601
  2. FOLIC ACID [Concomitant]
     Dates: start: 20080601
  3. LOVAZA [Concomitant]
     Dates: start: 20090101
  4. VITAMINS WITH MINERALS [Concomitant]

REACTIONS (2)
  - ABORTION SPONTANEOUS [None]
  - HAEMORRHAGE [None]
